FAERS Safety Report 10385160 (Version 1)
Quarter: 2014Q3

REPORT INFORMATION
  Report Type: Spontaneous
  Country: US (occurrence: None)
  Receive Date: 20140813
  Receipt Date: 20140813
  Transmission Date: 20150326
  Serious: No
  Sender: FDA-Public Use
  Company Number: None

PATIENT
  Age: 34 Year
  Sex: Female
  Weight: 60.78 kg

DRUGS (2)
  1. XOLAIR [Suspect]
     Active Substance: OMALIZUMAB
     Indication: ANGIOEDEMA
     Dosage: 300 MG  MONTHLY  GIVEN INTO/UNDER THE SKIN
     Route: 058
     Dates: start: 20140501, end: 20140812
  2. XOLAIR [Suspect]
     Active Substance: OMALIZUMAB
     Indication: URTICARIA
     Dosage: 300 MG  MONTHLY  GIVEN INTO/UNDER THE SKIN
     Route: 058
     Dates: start: 20140501, end: 20140812

REACTIONS (5)
  - Vomiting [None]
  - Decreased appetite [None]
  - Drug effect decreased [None]
  - Headache [None]
  - Nausea [None]

NARRATIVE: CASE EVENT DATE: 20140808
